FAERS Safety Report 5381163-0 (Version None)
Quarter: 2007Q3

REPORT INFORMATION
  Report Type: 
  Country: None (occurrence: None)
  Receive Date: 20070706
  Receipt Date: 20070625
  Transmission Date: 20080115
  Serious: Yes (Death, Hospitalization, Other)
  Sender: FDA-Public Use
  Company Number: MY-PFIZER INC-2007052206

PATIENT
  Sex: Female

DRUGS (8)
  1. SU-011,248 [Suspect]
     Indication: METASTATIC RENAL CELL CARCINOMA
     Route: 048
  2. PAMIDRONATE DISODIUM [Concomitant]
     Route: 042
     Dates: start: 20070509, end: 20070509
  3. NIFEDIPINE [Concomitant]
     Route: 048
     Dates: start: 20070131, end: 20070601
  4. ATENOLOL [Concomitant]
     Route: 048
     Dates: start: 20070131, end: 20070601
  5. NEURONTIN [Concomitant]
     Route: 048
     Dates: start: 20070509, end: 20070601
  6. MORPHINE MIXTURE [Concomitant]
     Route: 048
     Dates: start: 20021201, end: 20070601
  7. ULTRACET [Concomitant]
     Route: 048
     Dates: start: 20021201, end: 20070601
  8. CLODRONATE DISODIUM [Concomitant]
     Route: 048
     Dates: start: 20070509, end: 20070601

REACTIONS (4)
  - CLONIC CONVULSION [None]
  - DEATH [None]
  - HYPOTENSION [None]
  - LETHARGY [None]
